FAERS Safety Report 10979788 (Version 1)
Quarter: 2015Q2

REPORT INFORMATION
  Report Type: Spontaneous
  Country: AU (occurrence: AU)
  Receive Date: 20150402
  Receipt Date: 20150402
  Transmission Date: 20150821
  Serious: Yes (Other)
  Sender: FDA-Public Use
  Company Number: AU-ACTELION-A-CH2014-108930

PATIENT
  Age: 36 Year
  Sex: Female

DRUGS (2)
  1. OPSUMIT [Suspect]
     Active Substance: MACITENTAN
     Indication: PULMONARY ARTERIAL HYPERTENSION
     Dosage: 10 MG, BID
     Route: 048
     Dates: start: 2014
  2. METHOTREXATE [Concomitant]
     Active Substance: METHOTREXATE

REACTIONS (7)
  - Transaminases increased [Unknown]
  - Jaundice [Unknown]
  - Blood bilirubin increased [Unknown]
  - Abdominal pain upper [Unknown]
  - Aspartate aminotransferase increased [Unknown]
  - Platelet disorder [Unknown]
  - Cholelithiasis [Unknown]
